APPROVED DRUG PRODUCT: TIZANIDINE HYDROCHLORIDE
Active Ingredient: TIZANIDINE HYDROCHLORIDE
Strength: EQ 2MG BASE
Dosage Form/Route: CAPSULE;ORAL
Application: A091502 | Product #001
Applicant: PHARMOBEDIENT CONSULTING LLC
Approved: Nov 9, 2012 | RLD: No | RS: No | Type: DISCN